FAERS Safety Report 4281516-8 (Version None)
Quarter: 2004Q1

REPORT INFORMATION
  Report Type: 
  Country: None (occurrence: None)
  Receive Date: 20040108
  Receipt Date: 20031022
  Transmission Date: 20041129
  Serious: Yes (Other)
  Sender: FDA-Public Use
  Company Number: HQWYE548727OCT03

PATIENT
  Sex: Female

DRUGS (1)
  1. PREMPRO [Suspect]
     Dosage: UNKNOWN DOSAGE FOR AN UNDETERMINED DURATION, ORAL
     Route: 048
     Dates: start: 19990101, end: 20011001

REACTIONS (1)
  - CEREBROVASCULAR ACCIDENT [None]
